FAERS Safety Report 14307272 (Version 3)
Quarter: 2018Q1

REPORT INFORMATION
  Report Type: Spontaneous
  Country: IT (occurrence: IT)
  Receive Date: 20171220
  Receipt Date: 20180215
  Transmission Date: 20180509
  Serious: Yes (Other)
  Sender: FDA-Public Use
  Company Number: IT-ACCORD-061976

PATIENT
  Age: 70 Year
  Sex: Male

DRUGS (8)
  1. LEUCOVORIN. [Suspect]
     Active Substance: LEUCOVORIN
     Indication: ADENOCARCINOMA OF COLON
     Dosage: AS A 2-H INFUSION ON DAY 1
     Dates: start: 201410, end: 201501
  2. CAPECITABINE. [Suspect]
     Active Substance: CAPECITABINE
     Indication: ADENOCARCINOMA OF COLON
     Dosage: ON D1-14 Q3W, FOR 7 CYCLES?REDUCED
     Dates: start: 201204, end: 201312
  3. PANITUMUMAB [Suspect]
     Active Substance: PANITUMUMAB
     Indication: ADENOCARCINOMA OF COLON
     Dosage: ON DAY 1
     Route: 042
     Dates: start: 201410, end: 201505
  4. IRINOTECAN [Suspect]
     Active Substance: IRINOTECAN
     Indication: ADENOCARCINOMA OF COLON
     Dosage: ON DAY 1
     Dates: start: 201410, end: 201501
  5. OXALIPLATIN. [Suspect]
     Active Substance: OXALIPLATIN
     Indication: ADENOCARCINOMA OF COLON
     Dosage: ON DAY 1, FOR 7 CYCLES
     Dates: start: 201204
  6. BEVACIZUMAB. [Suspect]
     Active Substance: BEVACIZUMAB
     Indication: ADENOCARCINOMA OF COLON
     Dosage: ON D1 OF THE 3-WEEKLY CYCLE, FOR 7 CYCLES
     Dates: start: 201204, end: 201312
  7. FLUOROURACIL. [Suspect]
     Active Substance: FLUOROURACIL
     Indication: ADENOCARCINOMA OF COLON
     Dosage: D1:400/MG/M^2, THEN 2400 MG/M^2 (I.V. DRIP)
     Route: 040
     Dates: start: 201410, end: 201501
  8. LEUCOVORINE [Concomitant]
     Active Substance: LEUCOVORIN

REACTIONS (6)
  - Neutropenia [Unknown]
  - Asthenia [Unknown]
  - Palmar-plantar erythrodysaesthesia syndrome [Unknown]
  - Diarrhoea [Unknown]
  - Skin toxicity [Unknown]
  - Neuropathy peripheral [Unknown]

NARRATIVE: CASE EVENT DATE: 2015
